FAERS Safety Report 9241999 (Version 1)
Quarter: 2013Q2

REPORT INFORMATION
  Report Type: Spontaneous
  Country: US (occurrence: US)
  Receive Date: 20130419
  Receipt Date: 20130419
  Transmission Date: 20140414
  Serious: No
  Sender: FDA-Public Use
  Company Number: US-ASTRAZENECA-2009SE15168

PATIENT
  Age: 81 Year
  Sex: Male
  Weight: 59.9 kg

DRUGS (8)
  1. SYMBICORT PMDI [Suspect]
     Indication: CHRONIC OBSTRUCTIVE PULMONARY DISEASE
     Dosage: BID
     Route: 055
     Dates: start: 20090921
  2. SYMBICORT PMDI [Suspect]
     Indication: EMPHYSEMA
     Dosage: BID
     Route: 055
     Dates: start: 20090921
  3. SYMBICORT PMDI [Suspect]
     Indication: CHRONIC OBSTRUCTIVE PULMONARY DISEASE
     Dosage: 160/4.5 MCG, 2 PUFFS BID
     Route: 055
     Dates: start: 20130328
  4. SYMBICORT PMDI [Suspect]
     Indication: EMPHYSEMA
     Dosage: 160/4.5 MCG, 2 PUFFS BID
     Route: 055
     Dates: start: 20130328
  5. COMBIVENT [Concomitant]
     Dosage: PRN
  6. PROSCAR [Concomitant]
  7. FLOMAX [Concomitant]
  8. PREDNISONE [Concomitant]

REACTIONS (7)
  - Dysuria [Unknown]
  - Dyspnoea [Unknown]
  - Dyspnoea [Unknown]
  - Peripheral coldness [Unknown]
  - Peripheral coldness [Unknown]
  - Paraesthesia [Unknown]
  - Therapeutic response unexpected [Unknown]
